FAERS Safety Report 11716965 (Version 2)
Quarter: 2015Q4

REPORT INFORMATION
  Report Type: Spontaneous
  Country: US (occurrence: US)
  Receive Date: 20151104
  Receipt Date: 20151120
  Transmission Date: 20160304
  Serious: No
  Sender: FDA-Public Use
  Company Number: US-ELI_LILLY_AND_COMPANY-US201104000869

PATIENT
  Age: 60 Year
  Sex: Female

DRUGS (2)
  1. FORTEO [Suspect]
     Active Substance: TERIPARATIDE
     Dosage: 20 UG, QD
  2. FORTEO [Suspect]
     Active Substance: TERIPARATIDE
     Indication: OSTEOPOROSIS
     Dosage: 20 UG, QD
     Dates: start: 20101128, end: 20110327

REACTIONS (11)
  - Adverse event [Recovering/Resolving]
  - Feeling abnormal [Recovering/Resolving]
  - Distractibility [Unknown]
  - Impatience [Unknown]
  - Pain in extremity [Recovered/Resolved]
  - Joint stiffness [Recovering/Resolving]
  - Intentional product misuse [Unknown]
  - Lethargy [Recovering/Resolving]
  - Arthralgia [Recovering/Resolving]
  - Asthenia [Recovering/Resolving]
  - Pain [Recovering/Resolving]

NARRATIVE: CASE EVENT DATE: 201103
